FAERS Safety Report 19464214 (Version 1)
Quarter: 2021Q2

REPORT INFORMATION
  Report Type: Report from Study
  Country: EG (occurrence: EG)
  Receive Date: 20210627
  Receipt Date: 20210627
  Transmission Date: 20210717
  Serious: Yes (Other)
  Sender: FDA-Public Use
  Company Number: NVSC2021EG136846

PATIENT
  Age: 39 Year
  Sex: Male

DRUGS (1)
  1. GLIVEC [Suspect]
     Active Substance: IMATINIB MESYLATE
     Indication: CHRONIC MYELOID LEUKAEMIA
     Dosage: 400 MG, QD (STOPPED SINCE 5 MONTHS)
     Route: 048
     Dates: start: 2017

REACTIONS (5)
  - Gastrointestinal tract irritation [Not Recovered/Not Resolved]
  - Dyspnoea [Recovering/Resolving]
  - Abdominal discomfort [Not Recovered/Not Resolved]
  - Megacolon [Not Recovered/Not Resolved]
  - Flatulence [Not Recovered/Not Resolved]
